FAERS Safety Report 6301276-6 (Version None)
Quarter: 2009Q3

REPORT INFORMATION
  Report Type: 
  Country: None (occurrence: None)
  Receive Date: 20090807
  Receipt Date: 20090730
  Transmission Date: 20100115
  Serious: Yes (Hospitalization, Other)
  Sender: FDA-Public Use
  Company Number: US-ASTRAZENECA-2009SE06524

PATIENT
  Age: 66 Year
  Sex: Female

DRUGS (6)
  1. CRESTOR [Suspect]
     Route: 048
  2. ALLOPURINOL [Concomitant]
  3. FISH OIL [Concomitant]
  4. METAMUCIL [Concomitant]
  5. PERI-COLACE [Concomitant]
  6. ASPIRIN [Concomitant]

REACTIONS (2)
  - COLECTOMY [None]
  - HYPOAESTHESIA [None]
